FAERS Safety Report 6958678-4 (Version None)
Quarter: 2010Q3

REPORT INFORMATION
  Report Type: 
  Country: None (occurrence: None)
  Receive Date: 20100830
  Receipt Date: 20100830
  Transmission Date: 20110219
  Serious: Yes (Other)
  Sender: FDA-Public Use
  Company Number: None

PATIENT
  Age: 58 Year
  Sex: Female
  Weight: 66.6788 kg

DRUGS (1)
  1. ENBREL [Suspect]
     Indication: PSORIASIS
     Dosage: 50MG WEEKLY SQ
     Route: 058
     Dates: start: 20050804, end: 20100819

REACTIONS (3)
  - ADENOCARCINOMA [None]
  - RECURRENT CANCER [None]
  - SQUAMOUS CELL CARCINOMA [None]
